FAERS Safety Report 26205599 (Version 1)
Quarter: 2025Q4

REPORT INFORMATION
  Report Type: Spontaneous
  Country: US (occurrence: US)
  Receive Date: 20251228
  Receipt Date: 20251228
  Transmission Date: 20260117
  Serious: Yes (Hospitalization, Other)
  Sender: PROCTER AND GAMBLE
  Company Number: US-PROCTER+GAMBLE-PH25022020

PATIENT
  Age: 30 Year
  Sex: Female

DRUGS (1)
  1. ACETAMINOPHEN [Suspect]
     Active Substance: ACETAMINOPHEN
     Indication: Pain
     Dosage: 1 ONLY, SUSPECTED TO HAVE INGESTED A SINGLE LARGE DOSE OF ACETAMINOPHEN

REACTIONS (32)
  - Acute hepatic failure [Recovering/Resolving]
  - Drug-induced liver injury [Recovering/Resolving]
  - Hepatic encephalopathy [Recovering/Resolving]
  - International normalised ratio increased [Recovering/Resolving]
  - Hepatotoxicity [Recovering/Resolving]
  - Confusional state [Recovering/Resolving]
  - Jaundice [Recovering/Resolving]
  - Coagulopathy [Recovering/Resolving]
  - Mental status changes [Recovering/Resolving]
  - Agitation [Recovering/Resolving]
  - Coma scale abnormal [Recovering/Resolving]
  - Toxicity to various agents [Recovering/Resolving]
  - Alanine aminotransferase increased [Recovering/Resolving]
  - Ammonia increased [Recovering/Resolving]
  - Anion gap increased [Recovering/Resolving]
  - Aspartate aminotransferase increased [Recovering/Resolving]
  - Blood alkaline phosphatase increased [Recovering/Resolving]
  - Blood bicarbonate decreased [Recovering/Resolving]
  - Blood bilirubin increased [Recovering/Resolving]
  - Blood lactic acid increased [Recovering/Resolving]
  - Blood potassium decreased [Recovering/Resolving]
  - Blood pressure systolic increased [Recovering/Resolving]
  - Blood pressure diastolic increased [Recovering/Resolving]
  - Blood sodium decreased [Recovering/Resolving]
  - Tachycardia [Recovering/Resolving]
  - Heart rate increased [Recovering/Resolving]
  - Platelet count decreased [Recovering/Resolving]
  - Respiratory rate decreased [Recovering/Resolving]
  - White blood cell count increased [Recovering/Resolving]
  - Hypertension [Recovering/Resolving]
  - Metabolic acidosis [Recovering/Resolving]
  - Overdose [Unknown]
